FAERS Safety Report 23320708 (Version 1)
Quarter: 2023Q4

REPORT INFORMATION
  Report Type: Spontaneous
  Country: US (occurrence: None)
  Receive Date: 20231219
  Receipt Date: 20231219
  Transmission Date: 20240109
  Serious: Yes (Hospitalization)
  Sender: FDA-Public Use
  Company Number: None

PATIENT
  Sex: Male

DRUGS (4)
  1. PULMOZYME [Suspect]
     Active Substance: DORNASE ALFA
     Indication: Cystic fibrosis
     Dosage: 2.5MG BID INHALATION
     Route: 055
     Dates: start: 201706
  2. STERILE WATER [Concomitant]
     Active Substance: WATER
  3. COLISTIMETHATE SOD [Concomitant]
  4. CAYSTON INH SOLN [Concomitant]

REACTIONS (3)
  - Cystic fibrosis [None]
  - Extra dose administered [None]
  - Inappropriate schedule of product administration [None]
